FAERS Safety Report 19117762 (Version 93)
Quarter: 2025Q4

REPORT INFORMATION
  Report Type: Report from Study
  Country: US (occurrence: US)
  Receive Date: 20210409
  Receipt Date: 20251028
  Transmission Date: 20260117
  Serious: Yes (Other)
  Sender: TAKEDA
  Company Number: US-TAKEDA-US202034387

PATIENT
  Age: 62 Year
  Sex: Female
  Weight: 88 kg

DRUGS (50)
  1. VELAGLUCERASE ALFA [Suspect]
     Active Substance: VELAGLUCERASE ALFA
     Indication: Glycoprotein metabolism disorder
     Dosage: 5200 INTERNATIONAL UNIT, Q2WEEKS
  2. VELAGLUCERASE ALFA [Suspect]
     Active Substance: VELAGLUCERASE ALFA
     Dosage: 5200 INTERNATIONAL UNIT, Q2WEEKS
  3. VELAGLUCERASE ALFA [Suspect]
     Active Substance: VELAGLUCERASE ALFA
     Dosage: 5200 INTERNATIONAL UNIT, Q2WEEKS
  4. VELAGLUCERASE ALFA [Suspect]
     Active Substance: VELAGLUCERASE ALFA
     Dosage: 5200 INTERNATIONAL UNIT, Q2WEEKS
  5. STERILE WATER [Concomitant]
     Active Substance: WATER
     Dosage: UNK
  6. EPINEPHRINE [Concomitant]
     Active Substance: EPINEPHRINE
     Dosage: UNK
  7. SODIUM CHLORIDE [Concomitant]
     Active Substance: SODIUM CHLORIDE
     Dosage: UNK
  8. JUBLIA [Concomitant]
     Active Substance: EFINACONAZOLE
     Dosage: UNK
  9. AMBIEN [Concomitant]
     Active Substance: ZOLPIDEM TARTRATE
     Dosage: UNK
  10. DOXEPIN HYDROCHLORIDE [Concomitant]
     Active Substance: DOXEPIN HYDROCHLORIDE
     Dosage: UNK
  11. PROLIA [Concomitant]
     Active Substance: DENOSUMAB
     Dosage: UNK
  12. SODIUM CHLORIDE [Concomitant]
     Active Substance: SODIUM CHLORIDE
     Dosage: UNK
  13. HEPARIN [Concomitant]
     Active Substance: HEPARIN SODIUM
     Dosage: UNK
  14. HYDROCHLOROTHIAZIDE [Concomitant]
     Active Substance: HYDROCHLOROTHIAZIDE
     Dosage: UNK
  15. ALEVE [Concomitant]
     Active Substance: NAPROXEN SODIUM
     Dosage: UNK
  16. MAGNESIUM [Concomitant]
     Active Substance: MAGNESIUM
     Dosage: UNK
  17. ATORVASTATIN CALCIUM [Concomitant]
     Active Substance: ATORVASTATIN CALCIUM
     Dosage: UNK
  18. GABAPENTIN [Concomitant]
     Active Substance: GABAPENTIN
     Dosage: UNK
  19. CLOBETASOL [Concomitant]
     Active Substance: CLOBETASOL
     Dosage: UNK
  20. HEPARIN SODIUM [Concomitant]
     Active Substance: HEPARIN SODIUM
     Dosage: UNK
  21. OTEZLA [Concomitant]
     Active Substance: APREMILAST
     Dosage: UNK
  22. STOOL SOFTENER (DOCUSATE) [Concomitant]
     Active Substance: DOCUSATE
     Dosage: UNK
  23. VITAMIN B [Concomitant]
     Active Substance: VITAMIN B
     Dosage: UNK
  24. MONTELUKAST SODIUM [Concomitant]
     Active Substance: MONTELUKAST SODIUM
     Dosage: UNK
  25. ASPIRIN [Concomitant]
     Active Substance: ASPIRIN
     Dosage: UNK
  26. DIPHENHYDRAMINE HYDROCHLORIDE [Concomitant]
     Active Substance: DIPHENHYDRAMINE HYDROCHLORIDE
     Dosage: UNK
  27. METOPROLOL TARTRATE [Concomitant]
     Active Substance: METOPROLOL TARTRATE
     Dosage: UNK
  28. VITAMIN D3 [Concomitant]
     Active Substance: CHOLECALCIFEROL
     Dosage: UNK
  29. AMOXICILLIN\CLAVULANATE POTASSIUM [Concomitant]
     Active Substance: AMOXICILLIN\CLAVULANATE POTASSIUM
     Dosage: UNK
  30. POTASSIUM CHLORIDE [Concomitant]
     Active Substance: POTASSIUM CHLORIDE
     Dosage: UNK
  31. MELATONIN [Concomitant]
     Active Substance: MELATONIN
     Dosage: UNK
  32. ACETAMINOPHEN [Concomitant]
     Active Substance: ACETAMINOPHEN
     Dosage: UNK
  33. LIDOCAINE\PRILOCAINE [Concomitant]
     Active Substance: LIDOCAINE\PRILOCAINE
     Dosage: UNK
  34. LORATADINE [Concomitant]
     Active Substance: LORATADINE
     Dosage: UNK
  35. HYDROCODONE [Concomitant]
     Active Substance: HYDROCODONE
     Dosage: UNK
  36. POTASSIUM [Concomitant]
     Active Substance: POTASSIUM
     Dosage: UNK
  37. NAPROXEN [Concomitant]
     Active Substance: NAPROXEN
     Dosage: UNK
  38. PREDNISOLONE [Concomitant]
     Active Substance: PREDNISOLONE
     Dosage: UNK
  39. DEVICE [Concomitant]
     Active Substance: DEVICE
     Dosage: UNK
  40. Bromfenac;Gatifloxacin;Prednisolone acetate [Concomitant]
     Dosage: UNK
  41. ILUMYA [Concomitant]
     Active Substance: TILDRAKIZUMAB-ASMN
     Dosage: UNK
  42. HYDROCODONE BITARTRATE AND ACETAMINOPHEN [Concomitant]
     Active Substance: ACETAMINOPHEN\HYDROCODONE BITARTRATE
     Dosage: UNK
  43. MUPIROCIN [Concomitant]
     Active Substance: MUPIROCIN
     Dosage: UNK
  44. TRAMADOL HCL [Concomitant]
     Active Substance: TRAMADOL HYDROCHLORIDE
     Dosage: UNK
  45. AMLODIPINE BESYLATE [Concomitant]
     Active Substance: AMLODIPINE BESYLATE
     Dosage: UNK
  46. SERTRALINE HYDROCHLORIDE [Concomitant]
     Active Substance: SERTRALINE HYDROCHLORIDE
     Dosage: UNK
  47. ZYRTEC [Concomitant]
     Active Substance: CETIRIZINE HYDROCHLORIDE
     Dosage: UNK
  48. DOCUSATE SODIUM [Concomitant]
     Active Substance: DOCUSATE SODIUM
     Dosage: UNK
  49. MELOXICAM [Concomitant]
     Active Substance: MELOXICAM
     Dosage: UNK
  50. ACETAMINOPHEN AND CODEINE [Concomitant]
     Active Substance: ACETAMINOPHEN\CODEINE PHOSPHATE
     Dosage: UNK

REACTIONS (37)
  - Cataract [Unknown]
  - Oedema peripheral [Not Recovered/Not Resolved]
  - Oedema [Recovering/Resolving]
  - Hand fracture [Unknown]
  - Cough [Not Recovered/Not Resolved]
  - Nasopharyngitis [Unknown]
  - Upper-airway cough syndrome [Not Recovered/Not Resolved]
  - Tremor [Not Recovered/Not Resolved]
  - Pain in extremity [Recovering/Resolving]
  - Pain [Not Recovered/Not Resolved]
  - Petechiae [Not Recovered/Not Resolved]
  - Constipation [Recovering/Resolving]
  - Skin laceration [Unknown]
  - Allergic cough [Unknown]
  - Breath sounds abnormal [Unknown]
  - Multiple allergies [Not Recovered/Not Resolved]
  - Depression [Recovering/Resolving]
  - Psoriasis [Not Recovered/Not Resolved]
  - Contusion [Recovering/Resolving]
  - Peripheral swelling [Unknown]
  - COVID-19 [Not Recovered/Not Resolved]
  - Infection [Unknown]
  - Blood pressure fluctuation [Unknown]
  - Palpitations [Not Recovered/Not Resolved]
  - Middle ear effusion [Unknown]
  - Anxiety [Recovering/Resolving]
  - Seasonal allergy [Unknown]
  - Rhinorrhoea [Not Recovered/Not Resolved]
  - Sinus headache [Unknown]
  - Muscle spasms [Unknown]
  - Dizziness [Not Recovered/Not Resolved]
  - Arthralgia [Not Recovered/Not Resolved]
  - Fatigue [Recovering/Resolving]
  - Headache [Not Recovered/Not Resolved]
  - Rash [Unknown]
  - Dyspnoea [Not Recovered/Not Resolved]
  - Back pain [Not Recovered/Not Resolved]

NARRATIVE: CASE EVENT DATE: 20201105
